FAERS Safety Report 7971097-7 (Version None)
Quarter: 2011Q4

REPORT INFORMATION
  Report Type: 
  Country: None (occurrence: None)
  Receive Date: 20111212
  Receipt Date: 20111212
  Transmission Date: 20120403
  Serious: Yes (Other)
  Sender: FDA-Public Use
  Company Number: None

PATIENT
  Age: 34 Year
  Sex: Female
  Weight: 54.431 kg

DRUGS (1)
  1. SINGULAIR [Suspect]
     Indication: ASTHMA
     Dosage: ONE TABLET
     Route: 048
     Dates: start: 20100301, end: 20100601

REACTIONS (11)
  - THINKING ABNORMAL [None]
  - HOSTILITY [None]
  - ASTHMA [None]
  - FEELING ABNORMAL [None]
  - SUICIDAL IDEATION [None]
  - DEPRESSION [None]
  - CONDITION AGGRAVATED [None]
  - ANXIETY [None]
  - MOOD SWINGS [None]
  - AGITATION [None]
  - ABNORMAL DREAMS [None]
